FAERS Safety Report 9880271 (Version 1)
Quarter: 2014Q1

REPORT INFORMATION
  Report Type: Spontaneous
  Country: DE (occurrence: DE)
  Receive Date: 20140207
  Receipt Date: 20140207
  Transmission Date: 20141002
  Serious: Yes (Other)
  Sender: FDA-Public Use
  Company Number: DE-DRREDDYS-GER/GER/14/0037751

PATIENT
  Age: 68 Year
  Sex: Female
  Weight: 73 kg

DRUGS (2)
  1. CARVEDILOL [Suspect]
     Indication: PRODUCT USED FOR UNKNOWN INDICATION
     Dates: start: 2010
  2. ATACAND PROTECT 32MG TABLETTEN [Suspect]
     Indication: HYPERTENSION
     Route: 048
     Dates: start: 2010

REACTIONS (5)
  - Circulatory collapse [Recovered/Resolved]
  - Hypotension [Recovered/Resolved]
  - Bradycardia [Recovered/Resolved]
  - Chest discomfort [Recovered/Resolved]
  - Nausea [Recovered/Resolved]
